FAERS Safety Report 23904548 (Version 1)
Quarter: 2024Q2

REPORT INFORMATION
  Report Type: Report from Study
  Country: BR (occurrence: BR)
  Receive Date: 20240527
  Receipt Date: 20240527
  Transmission Date: 20240716
  Serious: Yes (Life-Threatening)
  Sender: FDA-Public Use
  Company Number: BR-002147023-PHHY2019BR202008

PATIENT
  Sex: Male

DRUGS (2)
  1. GLYCOPYRROLATE [Suspect]
     Active Substance: GLYCOPYRROLATE
     Indication: Bronchial disorder
     Dosage: 50 MG, QD (STARTED 3 OR 4 MONTHS AGO)
     Route: 065
     Dates: start: 2019
  2. ALENIA [Concomitant]
     Indication: Bronchial disorder
     Dosage: 400 MG, BID (STARTED 3 OR 4 MONTHS AGO)
     Route: 065
     Dates: start: 2019

REACTIONS (4)
  - Feeling abnormal [Not Recovered/Not Resolved]
  - Dyspnoea [Not Recovered/Not Resolved]
  - Product prescribing error [Unknown]
  - Product use in unapproved indication [Unknown]
